FAERS Safety Report 25571160 (Version 2)
Quarter: 2025Q3

REPORT INFORMATION
  Report Type: Spontaneous
  Country: JP (occurrence: JP)
  Receive Date: 20250717
  Receipt Date: 20250725
  Transmission Date: 20251021
  Serious: Yes (Death, Hospitalization, Other)
  Sender: ROCHE
  Company Number: JP-CHUGAI-2025017014

PATIENT
  Age: 81 Year
  Sex: Male
  Weight: 60.5 kg

DRUGS (1)
  1. TECENTRIQ [Suspect]
     Active Substance: ATEZOLIZUMAB
     Indication: Non-small cell lung cancer
     Dosage: 1200 MILLIGRAM, ONCE/3WEEKS
     Route: 042
     Dates: start: 20250305, end: 20250305

REACTIONS (4)
  - Atrial flutter [Recovered/Resolved]
  - Cerebral infarction [Unknown]
  - Disseminated intravascular coagulation [Unknown]
  - Disease progression [Fatal]

NARRATIVE: CASE EVENT DATE: 20250322
